FAERS Safety Report 25395617 (Version 2)
Quarter: 2025Q3

REPORT INFORMATION
  Report Type: Spontaneous
  Country: JP (occurrence: JP)
  Receive Date: 20250604
  Receipt Date: 20250728
  Transmission Date: 20251020
  Serious: Yes (Other)
  Sender: ORGANON
  Company Number: JP-JT-EVA202500141Dermavant Sciences Inc.

PATIENT
  Age: 53 Year
  Sex: Female

DRUGS (3)
  1. VTAMA [Suspect]
     Active Substance: TAPINAROF
     Indication: Psoriasis
     Dosage: 7 GRAM, QD
     Route: 061
     Dates: start: 20241125, end: 20241130
  2. ETRETINATE [Concomitant]
     Active Substance: ETRETINATE
     Indication: Psoriasis
     Dosage: 1 DOSAGE FORM, Q12H
     Route: 048
     Dates: start: 20241205, end: 20241209
  3. BETAMETHASONE DIPROPIONATE\CALCIPOTRIENE MONOHYDRATE [Concomitant]
     Active Substance: BETAMETHASONE DIPROPIONATE\CALCIPOTRIENE MONOHYDRATE
     Dosage: 10 GRAM, QD (SPR)
     Route: 003
     Dates: start: 20230427

REACTIONS (3)
  - Cellulitis [Recovered/Resolved]
  - Headache [Recovered/Resolved]
  - Dermatitis contact [Recovered/Resolved]

NARRATIVE: CASE EVENT DATE: 20241101
